FAERS Safety Report 11496264 (Version 2)
Quarter: 2015Q4

REPORT INFORMATION
  Report Type: Spontaneous
  Country: US (occurrence: US)
  Receive Date: 20150911
  Receipt Date: 20151016
  Transmission Date: 20160304
  Serious: Yes (Death, Hospitalization, Other)
  Sender: FDA-Public Use
  Company Number: US-DRREDDYS-USA/USA/15/0050572

PATIENT
  Age: 64 Year
  Sex: Female

DRUGS (10)
  1. VALGANCICLOVIR [Concomitant]
     Active Substance: VALGANCICLOVIR
     Indication: ANTIVIRAL PROPHYLAXIS
     Route: 065
  2. PENTAMIDINE [Concomitant]
     Active Substance: PENTAMIDINE
     Indication: ENCEPHALITIS PROTOZOAL
     Route: 065
  3. FLUCONAZOLE. [Suspect]
     Active Substance: FLUCONAZOLE
     Indication: ENCEPHALITIS PROTOZOAL
     Route: 065
  4. MILTEFOSINE [Concomitant]
     Active Substance: MILTEFOSINE
     Indication: ENCEPHALITIS PROTOZOAL
     Route: 065
  5. SULFADIAZINE. [Concomitant]
     Active Substance: SULFADIAZINE
     Indication: ENCEPHALITIS PROTOZOAL
     Route: 065
  6. TACROLIMUS. [Suspect]
     Active Substance: TACROLIMUS
     Indication: RENAL TRANSPLANT
     Route: 065
  7. MYCOPHENOLATE MOFETIL. [Concomitant]
     Active Substance: MYCOPHENOLATE MOFETIL
     Indication: RENAL TRANSPLANT
     Route: 065
  8. FLUCYTOSINE. [Concomitant]
     Active Substance: FLUCYTOSINE
     Indication: ENCEPHALITIS PROTOZOAL
     Route: 065
  9. PREDNISONE. [Concomitant]
     Active Substance: PREDNISONE
     Indication: RENAL TRANSPLANT
     Route: 065
  10. AZITHROMYCIN [Concomitant]
     Active Substance: AZITHROMYCIN ANHYDROUS
     Indication: ENCEPHALITIS PROTOZOAL
     Route: 065

REACTIONS (8)
  - Encephalitis protozoal [Fatal]
  - Acanthamoeba infection [Fatal]
  - Staphylococcal infection [Unknown]
  - Drug ineffective [Unknown]
  - Product quality issue [Unknown]
  - JC virus test positive [Fatal]
  - Coma [Fatal]
  - Condition aggravated [Fatal]
